FAERS Safety Report 8839783 (Version 1)
Quarter: 2012Q4

REPORT INFORMATION
  Report Type: Spontaneous
  Country: IT (occurrence: None)
  Receive Date: 20121011
  Receipt Date: 20121011
  Transmission Date: 20130627
  Serious: Yes (Life-Threatening, Hospitalization)
  Sender: FDA-Public Use
  Company Number: AUR-APL-2012-04314

PATIENT
  Age: 76 Year
  Sex: Female

DRUGS (7)
  1. BISOPROLOL [Suspect]
     Dosage: (1.25 MG, 1 IN 1 D)
     Route: 048
     Dates: start: 20120904
  2. FUROSEMIDE (FUROSEMIDE) [Suspect]
     Dosage: TOTAL
     Route: 042
     Dates: start: 20120904
  3. LASIX (FUROSEMIDE) [Suspect]
     Dosage: (2 DOSAFE FORMS, 1 IN 1 D)
     Route: 042
     Dates: start: 20120824
  4. KCL-RETARD (POTASSIUM CHLORIDE) [Concomitant]
  5. CLEXANE (ENOXAPARIN SODIUM) [Concomitant]
  6. MINIAS (LORMETAZEPAM) [Concomitant]
  7. ELOPRAM (CITALOPRAM) [Concomitant]

REACTIONS (2)
  - Cardiac arrest [None]
  - Hypokalaemia [None]
